FAERS Safety Report 9865415 (Version 1)
Quarter: 2014Q1

REPORT INFORMATION
  Report Type: Spontaneous
  Country: US (occurrence: US)
  Receive Date: 20140203
  Receipt Date: 20140203
  Transmission Date: 20141002
  Serious: No
  Sender: FDA-Public Use
  Company Number: US-ALLERGAN-1308629US

PATIENT
  Age: 60 Year
  Sex: Male

DRUGS (4)
  1. RESTASIS [Suspect]
     Indication: PRODUCT USED FOR UNKNOWN INDICATION
     Dosage: 1 GTT, SINGLE
     Route: 047
  2. LIPITOR [Concomitant]
     Indication: BLOOD CHOLESTEROL INCREASED
     Dosage: UNK
  3. FML FORTE [Concomitant]
     Indication: PHOTOREFRACTIVE KERATECTOMY
     Dosage: 1 GTT, QID
     Route: 047
  4. BETOPTIC [Concomitant]
     Indication: PHOTOREFRACTIVE KERATECTOMY
     Dosage: 1 GTT, BID
     Route: 047

REACTIONS (3)
  - Scleral hyperaemia [Recovered/Resolved]
  - Eyelid oedema [Recovered/Resolved]
  - Eye pain [Recovered/Resolved]
